FAERS Safety Report 8189116-4 (Version None)
Quarter: 2012Q1

REPORT INFORMATION
  Report Type: 
  Country: None (occurrence: None)
  Receive Date: 20120307
  Receipt Date: 20120222
  Transmission Date: 20120608
  Serious: Yes (Other)
  Sender: FDA-Public Use
  Company Number: CA-RANBAXY-2011US-50480

PATIENT
  Age: 27 Year
  Sex: Female

DRUGS (4)
  1. RISPERIDONE [Interacting]
     Dosage: 25 MG, FORTNIGHTLY
     Route: 065
  2. RISPERIDONE [Suspect]
     Indication: BIPOLAR DISORDER
     Dosage: 0.25 MG PER DAY
     Route: 065
  3. LITHIUM CARBONATE [Interacting]
     Indication: BIPOLAR DISORDER
     Dosage: 1050 MG DAILY
     Route: 065
  4. QUETIAPINE [Interacting]
     Indication: INSOMNIA
     Dosage: 25 MG, NIGHTLY
     Route: 065

REACTIONS (2)
  - DRUG INTERACTION [None]
  - DIABETES INSIPIDUS [None]
